FAERS Safety Report 5474761-7 (Version None)
Quarter: 2007Q4

REPORT INFORMATION
  Report Type: 
  Country: None (occurrence: None)
  Receive Date: 20071002
  Receipt Date: 20070927
  Transmission Date: 20080405
  Serious: Yes (Other)
  Sender: FDA-Public Use
  Company Number: A0685090A

PATIENT
  Age: 31 Year
  Sex: Female
  Weight: 95.4 kg

DRUGS (1)
  1. FLOLAN [Suspect]
     Indication: DRUG USE FOR UNKNOWN INDICATION
     Route: 042
     Dates: start: 20061102

REACTIONS (6)
  - ANXIETY [None]
  - HYPERHIDROSIS [None]
  - ILL-DEFINED DISORDER [None]
  - MEDICAL DEVICE COMPLICATION [None]
  - NERVOUSNESS [None]
  - PHARMACEUTICAL PRODUCT COMPLAINT [None]
